FAERS Safety Report 4832257-7 (Version None)
Quarter: 2005Q4

REPORT INFORMATION
  Report Type: 
  Country: None (occurrence: None)
  Receive Date: 20051118
  Receipt Date: 20050919
  Transmission Date: 20060501
  Serious: Yes (Hospitalization, Congenital Anomaly, Other)
  Sender: FDA-Public Use
  Company Number: GB-ABBOTT-05P-167-0311345-00

PATIENT
  Sex: Male

DRUGS (5)
  1. VALPROATE SODIUM [Suspect]
     Indication: DRUG EXPOSURE DURING PREGNANCY
  2. VALPROATE SODIUM [Suspect]
     Indication: MATERNAL USE OF ILLICIT DRUGS
  3. LAMOTRIGINE [Concomitant]
     Indication: DRUG EXPOSURE DURING PREGNANCY
  4. FOLIC ACID [Concomitant]
     Indication: DRUG EXPOSURE DURING PREGNANCY
     Dosage: FROM 7 WEEKS OF PREGNANCY
  5. SERAVENT [Concomitant]
     Indication: DRUG EXPOSURE DURING PREGNANCY

REACTIONS (17)
  - ABNORMAL BEHAVIOUR [None]
  - CHOKING [None]
  - CONGENITAL ORAL MALFORMATION [None]
  - CRYING [None]
  - CRYPTORCHISM [None]
  - DECREASED APPETITE [None]
  - DEVELOPMENTAL DELAY [None]
  - DISTURBANCE IN ATTENTION [None]
  - DRUG EXPOSURE DURING PREGNANCY [None]
  - FACIAL DYSMORPHISM [None]
  - FLAT FEET [None]
  - FOETAL VALPROATE SYNDROME [None]
  - INAPPROPRIATE AFFECT [None]
  - PSYCHIATRIC SYMPTOM [None]
  - SPEECH DISORDER DEVELOPMENTAL [None]
  - TOE DEFORMITY [None]
  - WEIGHT GAIN POOR [None]
